FAERS Safety Report 20740890 (Version 1)
Quarter: 2022Q2

REPORT INFORMATION
  Report Type: Spontaneous
  Country: US (occurrence: US)
  Receive Date: 20220422
  Receipt Date: 20220422
  Transmission Date: 20220721
  Serious: No
  Sender: FDA-Public Use
  Company Number: US-LANNETT COMPANY, INC.-US-2021LAN000119

PATIENT
  Sex: Female

DRUGS (1)
  1. LEVOTHYROXINE SODIUM [Suspect]
     Active Substance: LEVOTHYROXINE SODIUM
     Indication: Hypothyroidism
     Dosage: 100 ?G, QD
     Route: 048

REACTIONS (5)
  - Hypothyroidism [Unknown]
  - Dry eye [Unknown]
  - Dry skin [Unknown]
  - Hair texture abnormal [Unknown]
  - Alopecia [Unknown]
